FAERS Safety Report 4801170-3 (Version None)
Quarter: 2005Q4

REPORT INFORMATION
  Report Type: 
  Country: None (occurrence: None)
  Receive Date: 20051012
  Receipt Date: 20050926
  Transmission Date: 20060501
  Serious: Yes (Death)
  Sender: FDA-Public Use
  Company Number: 2005-BP-17092RO

PATIENT
  Age: 52 Year
  Sex: Male

DRUGS (6)
  1. ZIDOVUDINE [Suspect]
     Indication: HIV INFECTION
  2. LOPINAVIR (LOPINAVIR) [Suspect]
     Indication: HIV INFECTION
  3. RITONAVIR (RITONAVIR) [Suspect]
     Indication: HIV INFECTION
  4. LAMIVUDINE [Suspect]
     Indication: HIV INFECTION
  5. DIDANOSINE [Suspect]
     Indication: HIV INFECTION
  6. STEROIDS (CORTICOSTEROIDS [Concomitant]

REACTIONS (7)
  - AGGRESSION [None]
  - APHASIA [None]
  - CEREBRAL DISORDER [None]
  - CONFUSIONAL STATE [None]
  - DISORIENTATION [None]
  - IMMUNE RECONSTITUTION SYNDROME [None]
  - SEPTIC SHOCK [None]
